FAERS Safety Report 5942201-7 (Version None)
Quarter: 2008Q4

REPORT INFORMATION
  Report Type: 
  Country: None (occurrence: None)
  Receive Date: 20081031
  Receipt Date: 20081024
  Transmission Date: 20090506
  Serious: Yes (Other)
  Sender: FDA-Public Use
  Company Number: CHPA2008US18374

PATIENT
  Sex: Female

DRUGS (1)
  1. EX-LAX REG STR CHOCOLATED LAX PCS SEN (NCH)(SENNA GLYCOSIDES (CA SALTS [Suspect]
     Indication: CONSTIPATION
     Dosage: OFF AND ON, ORAL
     Route: 048
     Dates: start: 20081001

REACTIONS (2)
  - CHOLELITHIASIS [None]
  - DRUG INEFFECTIVE [None]
